FAERS Safety Report 4640322-2 (Version None)
Quarter: 2005Q2

REPORT INFORMATION
  Report Type: 
  Country: None (occurrence: None)
  Receive Date: 20050420
  Receipt Date: 20041230
  Transmission Date: 20051028
  Serious: No
  Sender: FDA-Public Use
  Company Number: US-GLAXOSMITHKLINE-A0538842A

PATIENT
  Age: 91 Year
  Sex: Female

DRUGS (2)
  1. ESKALITH [Suspect]
     Dosage: 450MG PER DAY
     Route: 048
  2. SYNTHROID [Concomitant]

REACTIONS (2)
  - FALL [None]
  - INJURY [None]
